FAERS Safety Report 7894917-3 (Version None)
Quarter: 2011Q4

REPORT INFORMATION
  Report Type: 
  Country: None (occurrence: None)
  Receive Date: 20111106
  Receipt Date: 20110819
  Transmission Date: 20120403
  Serious: No
  Sender: FDA-Public Use
  Company Number: US-AMGEN-USASP2011042426

PATIENT
  Age: 49 Year
  Sex: Female

DRUGS (3)
  1. BENADRYL [Concomitant]
  2. ENBREL [Suspect]
     Indication: PSORIASIS
     Dosage: 50 MG, 2 TIMES/WK
     Dates: start: 20110501
  3. AMBIEN [Concomitant]

REACTIONS (3)
  - MENTAL IMPAIRMENT [None]
  - CONFUSIONAL STATE [None]
  - COGNITIVE DISORDER [None]
